FAERS Safety Report 24654908 (Version 1)
Quarter: 2024Q4

REPORT INFORMATION
  Report Type: Spontaneous
  Country: US (occurrence: US)
  Receive Date: 20241122
  Receipt Date: 20241122
  Transmission Date: 20250115
  Serious: Yes (Other)
  Sender: RIGEL PHARMACEUTICALS
  Company Number: US-RIGEL PHARMACEUTICALS, INC-20241100109

PATIENT
  Sex: Male
  Weight: 83.915 kg

DRUGS (5)
  1. GAVRETO [Suspect]
     Active Substance: PRALSETINIB
     Indication: Thyroid cancer
     Dosage: 100 MG, QD
     Route: 048
     Dates: end: 2024
  2. LEVOTHYROXINE [Concomitant]
     Active Substance: LEVOTHYROXINE
     Indication: Product used for unknown indication
     Dosage: UNK
  3. CALCITRIOL [Concomitant]
     Active Substance: CALCITRIOL
     Dosage: UNK
  4. MELOXICAM [Concomitant]
     Active Substance: MELOXICAM
     Dosage: UNK
  5. LIOTHYRONINE [Concomitant]
     Active Substance: LIOTHYRONINE
     Dosage: UNK

REACTIONS (2)
  - Surgery [Recovering/Resolving]
  - Product prescribing issue [Unknown]

NARRATIVE: CASE EVENT DATE: 20240101
